FAERS Safety Report 14128736 (Version 1)
Quarter: 2017Q4

REPORT INFORMATION
  Report Type: Not Available
  Country: US (occurrence: US)
  Receive Date: 20171026
  Receipt Date: 20171026
  Transmission Date: 20180321
  Serious: No
  Sender: FDA-Public Use
  Company Number: US-NEUROCRINE BIOSCIENCES INC.-2017NBI00915

PATIENT
  Age: 50 Year
  Sex: Female

DRUGS (7)
  1. INGREZZA [Suspect]
     Active Substance: VALBENAZINE
     Route: 048
     Dates: start: 20170908, end: 20170927
  2. LO LOESTRIN FE [Concomitant]
     Active Substance: ETHINYL ESTRADIOL\NORETHINDRONE ACETATE
  3. INGREZZA [Suspect]
     Active Substance: VALBENAZINE
     Indication: PRODUCT USED FOR UNKNOWN INDICATION
     Route: 048
     Dates: start: 20170901, end: 20170907
  4. IRON [Concomitant]
     Active Substance: IRON
  5. CLONAZEPAM. [Concomitant]
     Active Substance: CLONAZEPAM
  6. DIAZEPAM. [Concomitant]
     Active Substance: DIAZEPAM
  7. LEVOTHYROXINE. [Concomitant]
     Active Substance: LEVOTHYROXINE

REACTIONS (5)
  - Musculoskeletal chest pain [Not Recovered/Not Resolved]
  - Insomnia [Unknown]
  - Drug ineffective [None]
  - Fatigue [Not Recovered/Not Resolved]
  - Akathisia [Not Recovered/Not Resolved]

NARRATIVE: CASE EVENT DATE: 20170901
